FAERS Safety Report 20973383 (Version 2)
Quarter: 2022Q3

REPORT INFORMATION
  Report Type: Report from Study
  Country: DE (occurrence: DE)
  Receive Date: 20220617
  Receipt Date: 20220729
  Transmission Date: 20221027
  Serious: Yes (Hospitalization)
  Sender: FDA-Public Use
  Company Number: DE-BAYER-2022A083428

PATIENT
  Age: 84 Year
  Sex: Female

DRUGS (15)
  1. EYLEA [Suspect]
     Active Substance: AFLIBERCEPT
     Indication: Neovascular age-related macular degeneration
     Dosage: 50 UL, ONCE, RIGHT EYE (OD), SOLUTION FOR INJECTION
     Route: 031
     Dates: start: 20200512, end: 20200512
  2. EYLEA [Suspect]
     Active Substance: AFLIBERCEPT
     Dosage: 50 UL, ONCE, RIGHT EYE (OD), SOLUTION FOR INJECTION
     Route: 031
     Dates: start: 20200623, end: 20200623
  3. EYLEA [Suspect]
     Active Substance: AFLIBERCEPT
     Dosage: 50 UL, ONCE, RIGHT EYE (OD), SOLUTION FOR INJECTION
     Route: 031
     Dates: start: 20200721, end: 20200721
  4. EYLEA [Suspect]
     Active Substance: AFLIBERCEPT
     Dosage: 50 UL, ONCE, RIGHT EYE (OD), SOLUTION FOR INJECTION
     Route: 031
     Dates: start: 20200901, end: 20200901
  5. EYLEA [Suspect]
     Active Substance: AFLIBERCEPT
     Dosage: 50 UL, ONCE, RIGHT EYE (OD), SOLUTION FOR INJECTION
     Route: 031
     Dates: start: 20210615, end: 20210615
  6. EYLEA [Suspect]
     Active Substance: AFLIBERCEPT
     Dosage: 50 UL, ONCE, RIGHT EYE (OD), SOLUTION FOR INJECTION
     Route: 031
     Dates: start: 20210713, end: 20210713
  7. EYLEA [Suspect]
     Active Substance: AFLIBERCEPT
     Dosage: 50 UL, ONCE, RIGHT EYE (OD), SOLUTION FOR INJECTION
     Route: 031
     Dates: start: 20210817, end: 20210817
  8. EYLEA [Suspect]
     Active Substance: AFLIBERCEPT
     Dosage: 50 UL, ONCE, RIGHT EYE (OD), SOLUTION FOR INJECTION
     Route: 031
     Dates: start: 20210914, end: 20210914
  9. EYLEA [Suspect]
     Active Substance: AFLIBERCEPT
     Dosage: 50 UL, ONCE, RIGHT EYE (OD), SOLUTION FOR INJECTION
     Route: 031
     Dates: start: 20211012, end: 20211012
  10. EYLEA [Suspect]
     Active Substance: AFLIBERCEPT
     Dosage: 50 UL, ONCE, RIGHT EYE (OD), SOLUTION FOR INJECTION
     Route: 031
     Dates: start: 20211109, end: 20211109
  11. EYLEA [Suspect]
     Active Substance: AFLIBERCEPT
     Dosage: 50 UL, ONCE, RIGHT EYE (OD), SOLUTION FOR INJECTION
     Route: 031
     Dates: start: 20211207, end: 20211207
  12. EYLEA [Suspect]
     Active Substance: AFLIBERCEPT
     Dosage: 50 UL, ONCE, RIGHT EYE (OD), SOLUTION FOR INJECTION
     Route: 031
     Dates: start: 20220111, end: 20220111
  13. EYLEA [Suspect]
     Active Substance: AFLIBERCEPT
     Dosage: 50 UL, ONCE, RIGHT EYE (OD), SOLUTION FOR INJECTION
     Route: 031
     Dates: start: 20220208, end: 20220208
  14. EYLEA [Suspect]
     Active Substance: AFLIBERCEPT
     Dosage: 50 UL, ONCE, RIGHT EYE (OD), SOLUTION FOR INJECTION
     Route: 031
     Dates: start: 20220308, end: 20220308
  15. EYLEA [Suspect]
     Active Substance: AFLIBERCEPT
     Dosage: 50 UL, ONCE, RIGHT EYE (OD), SOLUTION FOR INJECTION
     Route: 031
     Dates: start: 20220406, end: 20220406

REACTIONS (1)
  - Adverse event [Unknown]
